FAERS Safety Report 8006771-X (Version None)
Quarter: 2011Q4

REPORT INFORMATION
  Report Type: 
  Country: None (occurrence: None)
  Receive Date: 20111227
  Receipt Date: 20111216
  Transmission Date: 20120403
  Serious: Yes (Hospitalization)
  Sender: FDA-Public Use
  Company Number: US-BAYER-2011-046213

PATIENT
  Age: 29 Year
  Sex: Female
  Weight: 124.72 kg

DRUGS (10)
  1. ALBUTEROL [Concomitant]
     Indication: ASTHMA
     Dosage: 90 ?G, UNK
     Route: 048
     Dates: start: 20030912, end: 20031002
  2. YASMIN [Suspect]
     Indication: DYSFUNCTIONAL UTERINE BLEEDING
  3. HYDROXYZINE [Concomitant]
     Indication: MULTIPLE ALLERGIES
     Dosage: 25 MG, PRN
     Route: 048
     Dates: start: 20030912, end: 20031002
  4. YASMIN [Suspect]
     Indication: CONTRACEPTION
     Dosage: UNK
     Dates: start: 20030926, end: 20031002
  5. NAPROXEN [Concomitant]
     Dosage: UNK UNK, PRN
     Route: 048
     Dates: start: 20030912, end: 20031002
  6. EFFEXOR [Concomitant]
     Indication: DEPRESSION
     Dosage: 75 MG/24HR, UNK
     Route: 048
     Dates: start: 20030912, end: 20031002
  7. CYCLOBENZAPRINE [Concomitant]
     Indication: MUSCLE RELAXANT THERAPY
     Dosage: 10 MG, TID
     Route: 048
     Dates: start: 20030926, end: 20031002
  8. NSAID'S [Concomitant]
     Dosage: UNK UNK, PRN
     Dates: start: 20010101
  9. DICLOFENAC SODIUM [Concomitant]
     Indication: PAIN
     Dosage: 75 MG, BID
     Route: 048
     Dates: start: 20030926, end: 20031002
  10. FERROUS SULFATE TAB [Concomitant]
     Dosage: 325 MG, UNK
     Route: 048
     Dates: start: 20030926

REACTIONS (16)
  - ANHEDONIA [None]
  - TACHYCARDIA [None]
  - VEIN DISORDER [None]
  - FIBRIN D DIMER INCREASED [None]
  - DEEP VEIN THROMBOSIS [None]
  - INJURY [None]
  - COUGH [None]
  - CHEST PAIN [None]
  - VENOUS THROMBOSIS [None]
  - PULMONARY EMBOLISM [None]
  - PAIN [None]
  - EMOTIONAL DISTRESS [None]
  - DYSPNOEA [None]
  - PANIC REACTION [None]
  - ANXIETY [None]
  - VENTILATION PERFUSION MISMATCH [None]
